FAERS Safety Report 7150016-X (Version None)
Quarter: 2010Q4

REPORT INFORMATION
  Report Type: 
  Country: None (occurrence: None)
  Receive Date: 20101210
  Receipt Date: 20101202
  Transmission Date: 20110411
  Serious: Yes (Death, Hospitalization)
  Sender: FDA-Public Use
  Company Number: GB-CELGENEUS-167-21880-10112849

PATIENT
  Sex: Male
  Weight: 68.9 kg

DRUGS (8)
  1. REVLIMID [Suspect]
     Indication: MULTIPLE MYELOMA
     Route: 048
     Dates: start: 20101115
  2. LANSOPRAZOLE [Concomitant]
     Route: 048
  3. ALLOPURINOL [Concomitant]
     Route: 048
  4. ACYCLOVIR SODIUM [Concomitant]
     Route: 048
  5. TRAMADOL [Concomitant]
     Route: 048
  6. MOVICOL [Concomitant]
     Route: 048
  7. BONEFOS [Concomitant]
     Route: 048
  8. DIAZEPAM [Concomitant]
     Route: 048

REACTIONS (2)
  - MALAISE [None]
  - MULTIPLE MYELOMA [None]
